FAERS Safety Report 8267628-2 (Version None)
Quarter: 2012Q2

REPORT INFORMATION
  Report Type: 
  Country: None (occurrence: None)
  Receive Date: 20120409
  Receipt Date: 20120328
  Transmission Date: 20120825
  Serious: Yes (Hospitalization)
  Sender: FDA-Public Use
  Company Number: JP-ELI_LILLY_AND_COMPANY-JP201203008619

PATIENT
  Age: 27 Year
  Sex: Female

DRUGS (4)
  1. ZYPREXA [Suspect]
     Dosage: UNK
     Route: 048
  2. MEILAX [Concomitant]
     Dosage: UNK
     Route: 048
  3. ZYPREXA [Suspect]
     Dosage: UNK
     Route: 048
  4. MEILAX [Concomitant]
     Dosage: UNK
     Route: 048

REACTIONS (3)
  - OVERDOSE [None]
  - TOXICITY TO VARIOUS AGENTS [None]
  - AKATHISIA [None]
